FAERS Safety Report 9419625 (Version 1)
Quarter: 2013Q3

REPORT INFORMATION
  Report Type: Spontaneous
  Country: US (occurrence: None)
  Receive Date: 20130724
  Receipt Date: 20130724
  Transmission Date: 20140515
  Serious: Yes (Other)
  Sender: FDA-Public Use
  Company Number: None

PATIENT
  Age: 96 Year
  Sex: Female
  Weight: 55.79 kg

DRUGS (1)
  1. CLOBETASOL PROPIONATE [Suspect]
     Dates: start: 20130628, end: 20130629

REACTIONS (1)
  - Vulvovaginal burning sensation [None]
